FAERS Safety Report 12442679 (Version 1)
Quarter: 2016Q2

REPORT INFORMATION
  Report Type: Spontaneous
  Country: US (occurrence: None)
  Receive Date: 20160606
  Receipt Date: 20160606
  Transmission Date: 20160815
  Serious: Yes (Disabling, Other)
  Sender: FDA-Public Use
  Company Number: None

PATIENT
  Age: 47 Year
  Sex: Male
  Weight: 90.72 kg

DRUGS (10)
  1. SAPHRIS [Concomitant]
     Active Substance: ASENAPINE MALEATE
  2. TIZADINE [Concomitant]
     Active Substance: TIZANIDINE HYDROCHLORIDE
  3. AMBIEN [Concomitant]
     Active Substance: ZOLPIDEM TARTRATE
  4. TRAMADOL. [Concomitant]
     Active Substance: TRAMADOL
  5. WELLBUTRIN [Concomitant]
     Active Substance: BUPROPION HYDROCHLORIDE
  6. AMIPRISOL [Concomitant]
  7. CYMBALTA [Concomitant]
     Active Substance: DULOXETINE HYDROCHLORIDE
  8. SAVELLA [Suspect]
     Active Substance: MILNACIPRAN HYDROCHLORIDE
     Indication: FIBROMYALGIA
     Route: 048
  9. LITHIIM [Concomitant]
  10. HYDROCODONE [Concomitant]
     Active Substance: HYDROCODONE

REACTIONS (5)
  - Agitation [None]
  - Muscle spasms [None]
  - Muscle tightness [None]
  - Confusional state [None]
  - Insomnia [None]

NARRATIVE: CASE EVENT DATE: 20160603
